FAERS Safety Report 7121177-3 (Version None)
Quarter: 2010Q4

REPORT INFORMATION
  Report Type: 
  Country: None (occurrence: None)
  Receive Date: 20101124
  Receipt Date: 20101111
  Transmission Date: 20110411
  Serious: Yes (Hospitalization, Other)
  Sender: FDA-Public Use
  Company Number: PHEH2006US07761

PATIENT
  Sex: Female
  Weight: 76.643 kg

DRUGS (34)
  1. AREDIA [Suspect]
     Indication: COLON CANCER METASTATIC
     Dates: start: 19990101
  2. ZOMETA [Suspect]
     Indication: BONE DISORDER
     Dosage: 4 MG, UNK
     Route: 042
     Dates: start: 20020901
  3. 5-FU [Concomitant]
     Indication: COLON CANCER METASTATIC
     Dosage: 500 MG, UNK
     Route: 042
     Dates: start: 19990101
  4. 5-FU [Concomitant]
     Dosage: UNK, NO TREATMENT
  5. 5-FU [Concomitant]
     Dates: start: 20040426
  6. LEUCOVORIN CALCIUM [Concomitant]
     Indication: COLON CANCER METASTATIC
     Dosage: 900 MG, UNK
     Route: 042
     Dates: start: 19990101
  7. LEUCOVORIN CALCIUM [Concomitant]
     Dosage: UNK, NO TREATMENT
  8. LEUCOVORIN CALCIUM [Concomitant]
     Dates: start: 20040426
  9. IRINOTECAN HCL [Concomitant]
     Indication: COLON CANCER METASTATIC
     Dates: start: 19990101
  10. FOLFOX-4 [Concomitant]
     Dosage: UNK, UNK
     Dates: start: 20040412
  11. DAROB [Concomitant]
     Dosage: 200 UG, EVERY OTHER WEEK
     Route: 058
     Dates: start: 20041209
  12. EPOETIN NOS [Concomitant]
     Dosage: 40000 IU, UNK
  13. TEQUIN [Concomitant]
     Indication: PROPHYLAXIS
     Dates: start: 20011001
  14. AVASTIN [Concomitant]
     Indication: COLON CANCER METASTATIC
     Dosage: UNK, NO TREATMENT
  15. AVASTIN [Concomitant]
     Dosage: 390 MG, UNK
     Route: 042
     Dates: start: 20040426
  16. MORPHINE [Concomitant]
     Dosage: 30 MG, Q12H
  17. LORAZEPAM [Concomitant]
     Dosage: 1 MG, QHS
  18. AMITRIPTYLINE HCL [Concomitant]
     Dosage: 75 MG, QHS
  19. GLUCOSAMINE [Concomitant]
     Dosage: 500 MG, TID
  20. LORTAB [Concomitant]
     Indication: PAIN
     Dosage: 7.5 MG 1 PRN
  21. IBUPROFEN [Concomitant]
     Dosage: 800 MG, Q8H
  22. ASPIRIN [Concomitant]
     Dosage: 81 MG PER DAY
  23. FUROSEMIDE [Concomitant]
     Dosage: 20 MG DAY
  24. FLAGYL [Concomitant]
  25. COLACE [Concomitant]
  26. CHLORHEXIDINE [Concomitant]
  27. IRON [Concomitant]
  28. AMITRIPTYLINE HCL [Concomitant]
  29. FUROSEMIDE [Concomitant]
  30. MORPHINE [Concomitant]
  31. FERROUS SULFATE [Concomitant]
  32. LORAZEPAM [Concomitant]
  33. IBUPROFEN [Concomitant]
  34. ASPIRIN [Concomitant]

REACTIONS (50)
  - ARTHRITIS [None]
  - ASTHENIA [None]
  - BLOOD PRESSURE INCREASED [None]
  - BONE DISORDER [None]
  - BREAST CALCIFICATIONS [None]
  - CEREBROVASCULAR ACCIDENT [None]
  - CHRONIC OBSTRUCTIVE PULMONARY DISEASE [None]
  - COLECTOMY [None]
  - COLON CANCER RECURRENT [None]
  - COUGH [None]
  - DEHYDRATION [None]
  - DENTAL CARIES [None]
  - DEPRESSED MOOD [None]
  - DIABETES MELLITUS [None]
  - DYSPNOEA [None]
  - DYSSTASIA [None]
  - EDENTULOUS [None]
  - EMPHYSEMA [None]
  - FATIGUE [None]
  - FIBROADENOMA OF BREAST [None]
  - HEPATIC LESION [None]
  - HEPATIC MASS [None]
  - MALAISE [None]
  - MAMMOGRAM ABNORMAL [None]
  - METASTASES TO LIVER [None]
  - METASTASES TO LYMPH NODES [None]
  - NAUSEA [None]
  - NECROSIS [None]
  - OEDEMA [None]
  - OSTEOCHONDROSIS [None]
  - OSTEOMYELITIS [None]
  - OSTEONECROSIS OF JAW [None]
  - OSTEOPENIA [None]
  - OSTEOPOROSIS [None]
  - PAIN [None]
  - PAIN IN JAW [None]
  - PANCYTOPENIA [None]
  - PERIPHERAL SENSORIMOTOR NEUROPATHY [None]
  - PNEUMONIA [None]
  - POSITRON EMISSION TOMOGRAM ABNORMAL [None]
  - RASH [None]
  - RENAL FAILURE ACUTE [None]
  - RESTLESS LEGS SYNDROME [None]
  - SWELLING [None]
  - TOOTHACHE [None]
  - URINARY RETENTION [None]
  - VOMITING [None]
  - WEIGHT DECREASED [None]
  - WHEELCHAIR USER [None]
  - WOUND DRAINAGE [None]
